FAERS Safety Report 10283586 (Version 1)
Quarter: 2014Q3

REPORT INFORMATION
  Report Type: Spontaneous
  Country: IT (occurrence: None)
  Receive Date: 20140702
  Receipt Date: 20140702
  Transmission Date: 20150326
  Serious: Yes (Other)
  Sender: FDA-Public Use
  Company Number: FK201402570

PATIENT
  Age: 64 Year
  Sex: Female

DRUGS (14)
  1. OXALIPLATIN. [Suspect]
     Active Substance: OXALIPLATIN
     Indication: NON-HODGKIN^S LYMPHOMA
     Dosage: 210 MG, CYCLICAL, INTRAVENOUS DRIP
     Route: 041
     Dates: start: 20140530, end: 20140530
  2. PLASIL (METOCLOPRAMIDE) [Concomitant]
     Active Substance: METOCLOPRAMIDE
  3. MYCOSTATIN (NYSTATIN) [Concomitant]
  4. LEVOFLOXACINA (LEVOFLOXACIN) [Concomitant]
  5. SEKEPARINA (NADROPARIN CALCIUM) [Concomitant]
  6. CO EFFERALGON (PANADELINE CO) [Concomitant]
  7. ACICLOVIR (ACICLOVIR) [Concomitant]
     Active Substance: ACYCLOVIR
  8. FILGRASTIM (FILGRASTIM) [Concomitant]
     Active Substance: FILGRASTIM
  9. BACTRIM [Concomitant]
     Active Substance: SULFAMETHOXAZOLE\TRIMETHOPRIM
  10. LAMIVUDINE (LAMIVUDINE) [Concomitant]
     Active Substance: LAMIVUDINE
  11. CYTARABINE (MANUFACTURER UNKNOWN) (CYTARABINE) (CYTARABINE) [Suspect]
     Active Substance: CYTARABINE
     Indication: NON-HODGKIN^S LYMPHOMA
     Dosage: 3300 MG, CYCLICAL, INTRAV ENOUS DRIP
     Route: 041
     Dates: start: 20140531, end: 20140531
  12. RITUXIMAB [Suspect]
     Active Substance: RITUXIMAB
     Indication: NON-HODGKIN^S LYMPHOMA
     Dosage: 600 MG, CYCLICAL, INTRAVENOUS DRIP
     Route: 041
     Dates: start: 20140529, end: 20140529
  13. DEXAMETHASONE (DEXAMETHASONE) [Concomitant]
     Active Substance: DEXAMETHASONE
  14. PANTOPRAZOLE (PANTOPRAZOLE) [Concomitant]
     Active Substance: PANTOPRAZOLE SODIUM

REACTIONS (2)
  - Rectal haemorrhage [None]
  - Thrombocytopenia [None]

NARRATIVE: CASE EVENT DATE: 20140608
